FAERS Safety Report 8313446-6 (Version None)
Quarter: 2012Q2

REPORT INFORMATION
  Report Type: 
  Country: None (occurrence: None)
  Receive Date: 20120426
  Receipt Date: 20120423
  Transmission Date: 20120825
  Serious: Yes (Other)
  Sender: FDA-Public Use
  Company Number: PHHY2012JP033598

PATIENT
  Sex: Male

DRUGS (1)
  1. ZOLEDRONIC [Suspect]
     Indication: METASTASES TO BONE

REACTIONS (3)
  - PAIN IN JAW [None]
  - OSTEONECROSIS OF JAW [None]
  - BONE FISTULA [None]
